FAERS Safety Report 5335399-5 (Version None)
Quarter: 2007Q2

REPORT INFORMATION
  Report Type: 
  Country: None (occurrence: None)
  Receive Date: 20070525
  Receipt Date: 20070515
  Transmission Date: 20071010
  Serious: Yes (Other)
  Sender: FDA-Public Use
  Company Number: FR-PFIZER INC-2007040136

PATIENT
  Age: 71 Year
  Sex: Female

DRUGS (6)
  1. LYRICA [Suspect]
     Indication: NEURALGIA
  2. SABRIL [Concomitant]
  3. GARDENAL ^AVENTIS^ [Concomitant]
  4. IXEL [Concomitant]
  5. LYSANXIA [Concomitant]
  6. DAFALGAN [Concomitant]

REACTIONS (1)
  - VERTIGO [None]
